FAERS Safety Report 5164954-0 (Version None)
Quarter: 2006Q4

REPORT INFORMATION
  Report Type: 
  Country: None (occurrence: None)
  Receive Date: 20061205
  Receipt Date: 20061123
  Transmission Date: 20070319
  Serious: Yes (Death, Hospitalization)
  Sender: FDA-Public Use
  Company Number: CH-BRISTOL-MYERS SQUIBB COMPANY-13596556

PATIENT
  Sex: Male

DRUGS (5)
  1. CYCLOPHOSPHAMIDE [Suspect]
     Indication: B-CELL LYMPHOMA
     Route: 042
     Dates: start: 20050801, end: 20060101
  2. DOXORUBICIN HCL [Suspect]
     Indication: B-CELL LYMPHOMA
     Route: 042
     Dates: start: 20050801, end: 20060101
  3. MABTHERA [Suspect]
     Indication: B-CELL LYMPHOMA
     Route: 042
     Dates: start: 20050101, end: 20060201
  4. VINCRISTINE [Suspect]
     Indication: B-CELL LYMPHOMA
     Route: 042
     Dates: start: 20050801, end: 20060101
  5. PREDNISONE TAB [Suspect]
     Indication: B-CELL LYMPHOMA
     Route: 048

REACTIONS (5)
  - ENCEPHALOPATHY [None]
  - HAEMODYNAMIC INSTABILITY [None]
  - HEPATITIS B [None]
  - MULTI-ORGAN FAILURE [None]
  - RENAL FAILURE [None]
